FAERS Safety Report 16060182 (Version 1)
Quarter: 2019Q1

REPORT INFORMATION
  Report Type: Spontaneous
  Country: GB (occurrence: GB)
  Receive Date: 20190312
  Receipt Date: 20190312
  Transmission Date: 20190418
  Serious: Yes (Other)
  Sender: FDA-Public Use
  Company Number: GB-AMGEN-GBRSP2019035901

PATIENT
  Sex: Male

DRUGS (1)
  1. PROLIA [Suspect]
     Active Substance: DENOSUMAB
     Indication: PRODUCT USED FOR UNKNOWN INDICATION
     Dosage: UNK
     Route: 065
     Dates: start: 201812

REACTIONS (5)
  - Erection increased [Unknown]
  - Feeling abnormal [Unknown]
  - Eye haemorrhage [Unknown]
  - Testicular pain [Unknown]
  - Melaena [Unknown]

NARRATIVE: CASE EVENT DATE: 201812
